FAERS Safety Report 6367786-0 (Version None)
Quarter: 2009Q3

REPORT INFORMATION
  Report Type: 
  Country: None (occurrence: None)
  Receive Date: 20090921
  Receipt Date: 20090910
  Transmission Date: 20100115
  Serious: Yes (Death, Hospitalization, Other)
  Sender: FDA-Public Use
  Company Number: BR-ELI_LILLY_AND_COMPANY-BR200907002926

PATIENT
  Age: 74 Year
  Sex: Male

DRUGS (5)
  1. FORTEO [Suspect]
     Indication: OSTEOPOROSIS
     Dosage: UNK, DAILY (1/D)
     Route: 058
     Dates: start: 20081001
  2. OMEPRAZOLE [Concomitant]
     Dosage: UNK, UNKNOWN
     Route: 065
  3. VERAPAMIL [Concomitant]
     Dosage: UNK, UNKNOWN
     Route: 065
  4. FORADIL [Concomitant]
     Dosage: UNK, UNKNOWN
     Route: 065
  5. FORASEQ [Concomitant]
     Dosage: UNK, UNKNOWN
     Route: 065

REACTIONS (3)
  - FISTULA [None]
  - LOCAL SWELLING [None]
  - SEPSIS [None]
